FAERS Safety Report 5795636-X (Version None)
Quarter: 2008Q2

REPORT INFORMATION
  Report Type: 
  Country: None (occurrence: None)
  Receive Date: 20080630
  Receipt Date: 20080620
  Transmission Date: 20081010
  Serious: Yes (Disabling)
  Sender: FDA-Public Use
  Company Number: GB-MERCK-0806GBR00087

PATIENT
  Age: 41 Year
  Sex: Male
  Weight: 66 kg

DRUGS (2)
  1. ZOCOR [Suspect]
     Route: 048
     Dates: start: 20070515, end: 20070530
  2. ZOCOR [Suspect]
     Route: 048
     Dates: start: 20071004, end: 20071127

REACTIONS (1)
  - LETHARGY [None]
